FAERS Safety Report 10803377 (Version 4)
Quarter: 2015Q1

REPORT INFORMATION
  Report Type: Spontaneous
  Country: JP (occurrence: JP)
  Receive Date: 20150217
  Receipt Date: 20150306
  Transmission Date: 20150721
  Serious: Yes (Death, Life-Threatening, Hospitalization, Disabling, Other)
  Sender: FDA-Public Use
  Company Number: JP-CELGENE-JPN-2015022281

PATIENT
  Age: 52 Year
  Sex: Female
  Weight: 57 kg

DRUGS (7)
  1. CALONAL [Concomitant]
     Active Substance: ACETAMINOPHEN
     Indication: HEADACHE
     Route: 048
     Dates: start: 20141217, end: 20150206
  2. ETODOLAC. [Concomitant]
     Active Substance: ETODOLAC
     Indication: HEADACHE
     Route: 048
     Dates: start: 20150129, end: 20150206
  3. ABRAXANE [Suspect]
     Active Substance: PACLITAXEL
     Indication: PANCREATIC CARCINOMA METASTATIC
     Dosage: 165 MILLIGRAM
     Route: 041
     Dates: start: 20150129, end: 20150129
  4. NEXIUM [Concomitant]
     Active Substance: ESOMEPRAZOLE MAGNESIUM
     Indication: GASTRITIS
     Route: 048
     Dates: start: 20141121, end: 20150207
  5. BROTIZOLAM [Concomitant]
     Active Substance: BROTIZOLAM
     Indication: INSOMNIA
     Route: 048
     Dates: start: 20150206
  6. TRAMAL [Concomitant]
     Active Substance: TRAMADOL
     Indication: HEADACHE
     Route: 048
     Dates: start: 20150203, end: 20150207
  7. GEMCITABINE HYDROCHLORIDE. [Suspect]
     Active Substance: GEMCITABINE HYDROCHLORIDE
     Indication: PANCREATIC CARCINOMA METASTATIC
     Dosage: DAY 1, 8, AND 15 OF A 28 DAY CYCLE
     Route: 041
     Dates: start: 20150129, end: 2015

REACTIONS (3)
  - Anaemia [Recovering/Resolving]
  - Disseminated intravascular coagulation [Fatal]
  - Cerebral infarction [Fatal]

NARRATIVE: CASE EVENT DATE: 20150202
